FAERS Safety Report 9586374 (Version 1)
Quarter: 2013Q4

REPORT INFORMATION
  Report Type: Spontaneous
  Country: US (occurrence: US)
  Receive Date: 20131003
  Receipt Date: 20131003
  Transmission Date: 20140711
  Serious: Yes (Hospitalization)
  Sender: FDA-Public Use
  Company Number: US-ELI_LILLY_AND_COMPANY-US201309009391

PATIENT
  Sex: Female

DRUGS (6)
  1. FORTEO [Suspect]
     Indication: BONE DISORDER
     Dosage: 20 UG, QD
     Dates: start: 201209
  2. FORTEO [Suspect]
     Indication: GAIT DISTURBANCE
  3. PROAIR [Concomitant]
     Indication: ASTHMA
  4. ALBUTEROL [Concomitant]
     Indication: ASTHMA
  5. IRON [Concomitant]
     Indication: HAEMOGLOBIN DECREASED
  6. SPIRIVA [Concomitant]
     Indication: ASTHMA

REACTIONS (5)
  - Pneumonia [Unknown]
  - Bronchitis [Unknown]
  - Dysphagia [Recovered/Resolved]
  - Off label use [Unknown]
  - Asthma [Not Recovered/Not Resolved]
